FAERS Safety Report 9758980 (Version 1)
Quarter: 2013Q4

REPORT INFORMATION
  Report Type: Spontaneous
  Country: US (occurrence: None)
  Receive Date: 20131216
  Receipt Date: 20131216
  Transmission Date: 20140711
  Serious: Yes (Other)
  Sender: FDA-Public Use
  Company Number: 163-21880-12010121(0)

PATIENT
  Age: 57 Year
  Sex: Female
  Weight: 173 kg

DRUGS (1)
  1. REVLIMID ( LENALIDOMIDE) ( 25 MILLIGRAM, CAPSULES) [Suspect]
     Indication: PLASMA CELL MYELOMA
     Dosage: 25 MG, 1 IN 1 D, PO?5 MG, 1 IN 1 D, PO ?10 MG, 1 IN 1 D, PO ?5 MG, 21 DAYS OUT OF A 28 DAY CYCLE, PO

REACTIONS (4)
  - Diarrhoea [None]
  - Pruritus [None]
  - Hypokalaemia [None]
  - Liver function test abnormal [None]
